FAERS Safety Report 6881119-2 (Version None)
Quarter: 2010Q3

REPORT INFORMATION
  Report Type: 
  Country: None (occurrence: None)
  Receive Date: 20100727
  Receipt Date: 20100720
  Transmission Date: 20110219
  Serious: No
  Sender: FDA-Public Use
  Company Number: 2009BI018921

PATIENT
  Sex: Female

DRUGS (1)
  1. TYSABRI [Suspect]
     Indication: MULTIPLE SCLEROSIS
     Route: 042
     Dates: start: 20090527

REACTIONS (21)
  - ARTHRALGIA [None]
  - ARTHRITIS [None]
  - BACK PAIN [None]
  - CONTUSION [None]
  - CRYING [None]
  - DIPLOPIA [None]
  - DIZZINESS [None]
  - ERYTHEMA [None]
  - FALL [None]
  - FATIGUE [None]
  - LABYRINTHITIS [None]
  - MUSCLE DISORDER [None]
  - MUSCLE TIGHTNESS [None]
  - OEDEMA PERIPHERAL [None]
  - SINUSITIS [None]
  - SKIN LACERATION [None]
  - SOMNOLENCE [None]
  - SWELLING FACE [None]
  - VARICOSE VEIN [None]
  - VASOCONSTRICTION [None]
  - WEIGHT INCREASED [None]
